FAERS Safety Report 15657139 (Version 1)
Quarter: 2018Q4

REPORT INFORMATION
  Report Type: Report from Study
  Country: GB (occurrence: GB)
  Receive Date: 20181126
  Receipt Date: 20181126
  Transmission Date: 20190205
  Serious: Yes (Hospitalization, Other)
  Sender: FDA-Public Use
  Company Number: GB-JNJFOC-20181123336

PATIENT
  Age: 60 Year
  Sex: Male

DRUGS (1)
  1. STELARA [Suspect]
     Active Substance: USTEKINUMAB
     Indication: PSORIASIS
     Route: 058

REACTIONS (5)
  - Loss of consciousness [Unknown]
  - Cardiac disorder [Unknown]
  - Lip injury [Unknown]
  - Tooth fracture [Unknown]
  - Fall [Unknown]

NARRATIVE: CASE EVENT DATE: 20181107
